FAERS Safety Report 10086261 (Version 1)
Quarter: 2014Q2

REPORT INFORMATION
  Report Type: Spontaneous
  Country: US (occurrence: None)
  Receive Date: 20140417
  Receipt Date: 20140417
  Transmission Date: 20141212
  Serious: Yes (Hospitalization)
  Sender: FDA-Public Use
  Company Number: None

PATIENT
  Age: 69 Year
  Sex: Male
  Weight: 125.19 kg

DRUGS (19)
  1. ABRAXANE [Suspect]
     Indication: PANCREATIC CARCINOMA
     Dosage: 380MG/D1
     Dates: start: 20140404
  2. OXALIPLATIN [Suspect]
     Indication: PANCREATIC CARCINOMA
     Dosage: 215MG/D1
     Dates: start: 20140404
  3. LEUCOVORIN 400MG/M2/IV [Suspect]
     Dosage: 400MG/D1
     Dates: start: 20140404
  4. 5-FU [Suspect]
     Indication: PANCREATIC CARCINOMA
     Dosage: 6096MGX46HR
     Dates: start: 20140404
  5. ADVAIR 250/90 [Concomitant]
  6. ALBUTEROL 0.083% UNIT DOSE [Concomitant]
  7. FINASTERIDE 5MG [Concomitant]
  8. CEFTRIAXONE 1G/50ML [Concomitant]
  9. ENOXAPARIN 40MG [Concomitant]
  10. GUAIFENESIN/DEXTROMETH LIQ, 10ML [Concomitant]
  11. SENNA [Concomitant]
  12. TAMSULOSIN 0.4MG [Concomitant]
  13. TORAMYCIN/DEXAMETHASONE EYEDROPS [Concomitant]
  14. PROCHLORPERAZINE MELATE [Concomitant]
  15. OXYCODONE 3MG [Concomitant]
  16. MOXIFLOXICIN 400MG [Concomitant]
  17. VENTOLIN INHALER [Concomitant]
  18. TESSALON PEARLS [Concomitant]
  19. CREON 1200U [Concomitant]

REACTIONS (7)
  - Lip infection [None]
  - Dyspnoea [None]
  - Fatigue [None]
  - Pleural effusion [None]
  - Pneumonia [None]
  - Lung infection [None]
  - Mucosal infection [None]
